FAERS Safety Report 14983684 (Version 2)
Quarter: 2018Q4

REPORT INFORMATION
  Report Type: Spontaneous
  Country: US (occurrence: US)
  Receive Date: 20180607
  Receipt Date: 20181121
  Transmission Date: 20190204
  Serious: No
  Sender: FDA-Public Use
  Company Number: US-PFIZER INC-2018151705

PATIENT
  Age: 52 Year
  Sex: Female
  Weight: 77.98 kg

DRUGS (17)
  1. DOCETAXEL. [Suspect]
     Active Substance: DOCETAXEL
     Dosage: 145 MG, CYCLIC (EVERY THREE WEEKS, NUMBER OF CYCLES 3)
     Dates: start: 20120629
  2. DOCETAXEL. [Suspect]
     Active Substance: DOCETAXEL
     Dosage: 115 MG, CYCLIC (EVERY THREE WEEKS, NUMBER OF CYCLES 3)
     Dates: start: 20120802, end: 20120906
  3. TAXOTERE [Suspect]
     Active Substance: DOCETAXEL
     Dosage: 145 MG, CYCLIC (EVERY THREE WEEKS, NUMBER OF CYCLES 3)
     Dates: start: 20120629
  4. TAXOTERE [Suspect]
     Active Substance: DOCETAXEL
     Dosage: 115 MG, CYCLIC (EVERY THREE WEEKS, NUMBER OF CYCLES 3)
     Dates: start: 20120802, end: 20120906
  5. PARAPLATIN [Concomitant]
     Active Substance: CARBOPLATIN
     Dosage: 685 MG, UNK
     Dates: start: 20120705
  6. ZOFRAN [Concomitant]
     Active Substance: ONDANSETRON HYDROCHLORIDE
     Dosage: UNK
  7. DOCETAXEL. [Suspect]
     Active Substance: DOCETAXEL
     Dosage: 145 MG, CYCLIC (EVERY THREE WEEKS, NUMBER OF CYCLES 3)
     Dates: start: 20120622
  8. TAXOTERE [Suspect]
     Active Substance: DOCETAXEL
     Dosage: 145 MG, CYCLIC (EVERY THREE WEEKS, NUMBER OF CYCLES 3)
     Dates: start: 20120622
  9. PARAPLATIN [Concomitant]
     Active Substance: CARBOPLATIN
     Indication: CHEMOTHERAPY
     Dosage: 685 MG, UNK
     Dates: start: 20120601
  10. DECADRON [Concomitant]
     Active Substance: DEXAMETHASONE
     Dosage: UNK
  11. TAXOTERE [Suspect]
     Active Substance: DOCETAXEL
     Indication: INVASIVE DUCTAL BREAST CARCINOMA
     Dosage: 145 MG, CYCLIC (EVERY THREE WEEKS, NUMBER OF CYCLES 3)
     Dates: start: 20120601
  12. DOCETAXEL. [Suspect]
     Active Substance: DOCETAXEL
     Indication: INVASIVE DUCTAL BREAST CARCINOMA
     Dosage: 145 MG, CYCLIC (EVERY THREE WEEKS, NUMBER OF CYCLES 3)
     Dates: start: 20120601
  13. DOCETAXEL. [Suspect]
     Active Substance: DOCETAXEL
     Dosage: 145 MG, CYCLIC (EVERY THREE WEEKS, NUMBER OF CYCLES 3)
     Dates: start: 20120705
  14. TAXOTERE [Suspect]
     Active Substance: DOCETAXEL
     Dosage: 145 MG, CYCLIC (EVERY THREE WEEKS, NUMBER OF CYCLES 3)
     Dates: start: 20120705
  15. PARAPLATIN [Concomitant]
     Active Substance: CARBOPLATIN
     Dosage: 685 MG, UNK
     Dates: start: 20120622
  16. PARAPLATIN [Concomitant]
     Active Substance: CARBOPLATIN
     Dosage: 685 MG, UNK
     Dates: start: 20120629
  17. PARAPLATIN [Concomitant]
     Active Substance: CARBOPLATIN
     Dosage: 550 MG, UNK
     Dates: start: 20120802

REACTIONS (7)
  - Hair colour changes [Unknown]
  - Madarosis [Not Recovered/Not Resolved]
  - Depressed mood [Unknown]
  - Alopecia [Not Recovered/Not Resolved]
  - Hair disorder [Unknown]
  - Hair texture abnormal [Unknown]
  - Depression [Unknown]

NARRATIVE: CASE EVENT DATE: 20130306
